FAERS Safety Report 7620538-3 (Version None)
Quarter: 2011Q3

REPORT INFORMATION
  Report Type: 
  Country: None (occurrence: None)
  Receive Date: 20110719
  Receipt Date: 20110714
  Transmission Date: 20111222
  Serious: Yes (Death, Hospitalization)
  Sender: FDA-Public Use
  Company Number: DE-PFIZER INC-2011160296

PATIENT
  Age: 49 Year
  Sex: Male

DRUGS (3)
  1. TORISEL [Suspect]
     Indication: HEAD AND NECK CANCER
     Dosage: 25 MG, WEEKLY
     Route: 041
     Dates: start: 20110628, end: 20110628
  2. CEFUROXIME [Concomitant]
     Indication: PYREXIA
     Dosage: UNK
     Dates: start: 20110610, end: 20110625
  3. AVELOX [Concomitant]
     Indication: PYREXIA
     Dosage: 400 MG, 1X/DAY
     Route: 048
     Dates: start: 20110625, end: 20110706

REACTIONS (2)
  - PNEUMONIA [None]
  - SEPSIS [None]
